FAERS Safety Report 14694563 (Version 2)
Quarter: 2018Q3

REPORT INFORMATION
  Report Type: Spontaneous
  Country: CA (occurrence: CA)
  Receive Date: 20180329
  Receipt Date: 20180918
  Transmission Date: 20181010
  Serious: Yes (Other)
  Sender: FDA-Public Use
  Company Number: CA-CELLTRION INC.-2018CA018865

PATIENT

DRUGS (6)
  1. INFLECTRA [Suspect]
     Active Substance: INFLIXIMAB-DYYB
     Indication: COLITIS ULCERATIVE
     Dosage: 700 MG, CYCLIC (0,2,6 THEN EVERY 8 WEEKS)
     Route: 042
     Dates: start: 20180406
  2. PREDNISONE. [Concomitant]
     Active Substance: PREDNISONE
     Dosage: UNK
  3. MORPHINE [Concomitant]
     Active Substance: MORPHINE
  4. INFLECTRA [Suspect]
     Active Substance: INFLIXIMAB-DYYB
     Dosage: UNK
     Route: 042
     Dates: start: 20180314
  5. SIMPONI [Concomitant]
     Active Substance: GOLIMUMAB
     Dosage: UNK
  6. INFLECTRA [Suspect]
     Active Substance: INFLIXIMAB-DYYB
     Dosage: 700 MG, CYCLIC(0, 2, 6 THEN EVERY 8 WEEKS)
     Route: 042
     Dates: start: 20180905

REACTIONS (2)
  - Drug ineffective [Unknown]
  - Weight increased [Unknown]

NARRATIVE: CASE EVENT DATE: 20180319
